FAERS Safety Report 9849029 (Version 2)
Quarter: 2014Q2

REPORT INFORMATION
  Report Type: Report from Study
  Country: BR (occurrence: BR)
  Receive Date: 20140128
  Receipt Date: 20140403
  Transmission Date: 20141212
  Serious: Yes (Other)
  Sender: FDA-Public Use
  Company Number: PHHY2014BR009187

PATIENT
  Sex: Female
  Weight: 56 kg

DRUGS (2)
  1. DIOVAN [Suspect]
     Indication: HYPERTENSION
     Dosage: 1 DF (80MG), 1 IN THE MORNING AND 1 AT NIGHT
     Route: 048
     Dates: start: 201304, end: 201305
  2. ANGIPRESS [Concomitant]
     Indication: TACHYCARDIA
     Dosage: 25 MG, UNK
     Dates: start: 1994, end: 201305

REACTIONS (2)
  - Venous occlusion [Recovering/Resolving]
  - Aortic valve disease [Unknown]
